FAERS Safety Report 14472535 (Version 3)
Quarter: 2018Q2

REPORT INFORMATION
  Report Type: Spontaneous
  Country: DK (occurrence: DK)
  Receive Date: 20180201
  Receipt Date: 20180626
  Transmission Date: 20180711
  Serious: Yes (Other)
  Sender: FDA-Public Use
  Company Number: PHHY2017DK200016

PATIENT
  Sex: Female

DRUGS (10)
  1. ETOPOSIDE. [Suspect]
     Active Substance: ETOPOSIDE
     Indication: GESTATIONAL TROPHOBLASTIC TUMOUR
     Dosage: 100 MG/M2, QD (DAY 1-5, EVERY 3 WEEKS)
     Route: 042
  2. CALCIUM FOLINATE [Concomitant]
     Active Substance: LEUCOVORIN CALCIUM
     Indication: DRUG TOXICITY PROPHYLAXIS
     Dosage: 1 ML, Q4WK
     Route: 048
  3. ETOPOSIDE. [Suspect]
     Active Substance: ETOPOSIDE
     Dosage: 165 MG/M2, DAY 1-3
     Route: 042
  4. METHOTREXATE. [Suspect]
     Active Substance: METHOTREXATE
     Indication: GESTATIONAL TROPHOBLASTIC TUMOUR
     Dosage: 10 MG, QD (REPEATED EVERY 4 WEEKS (ALTERNATIVELY EVERY3 WEEKS))
     Route: 048
  5. METHOTREXATE. [Suspect]
     Active Substance: METHOTREXATE
     Dosage: 2.5 MG, Q4W
     Route: 048
  6. METHOTREXATE. [Suspect]
     Active Substance: METHOTREXATE
     Dosage: 2.5 MG, Q3W
     Route: 048
  7. CISPLATIN. [Suspect]
     Active Substance: CISPLATIN
     Dosage: 20 MG/M2, QD (DAY 1-5, EVERY 3 WEEKS)
     Route: 042
  8. BLEOMYCIN [Suspect]
     Active Substance: BLEOMYCIN SULFATE
     Indication: GESTATIONAL TROPHOBLASTIC TUMOUR
     Dosage: 30000 IU, QW (ON DAY 2,9,16 AND REPEATED EVERY 3 WEEKS)
     Route: 042
  9. DACTINOMYCIN [Concomitant]
     Active Substance: DACTINOMYCIN
     Indication: PRODUCT USED FOR UNKNOWN INDICATION
     Dosage: 0.5 MG, UNK (SCHEDULE REPEATED EVERY 4 WEEKS (ALTERNATIVELY EVERY3 WEEKS))
     Route: 042
  10. CISPLATIN. [Suspect]
     Active Substance: CISPLATIN
     Indication: GESTATIONAL TROPHOBLASTIC TUMOUR
     Dosage: 50 MG/M2, DAY 1-2
     Route: 042
     Dates: start: 2010

REACTIONS (4)
  - Respiratory symptom [Unknown]
  - Product use in unapproved indication [Unknown]
  - Drug resistance [Unknown]
  - Anaemia [Unknown]
